FAERS Safety Report 24751489 (Version 1)
Quarter: 2024Q4

REPORT INFORMATION
  Report Type: Spontaneous
  Country: US (occurrence: US)
  Receive Date: 20241219
  Receipt Date: 20241219
  Transmission Date: 20250115
  Serious: No
  Sender: PACIRA
  Company Number: US-ORG100016242-2023000319

PATIENT
  Sex: Female

DRUGS (1)
  1. EXPAREL [Suspect]
     Active Substance: BUPIVACAINE
     Indication: Surgery
     Dosage: NOT PROVIDED
     Route: 065
     Dates: start: 20231106, end: 20231106

REACTIONS (7)
  - Hypoaesthesia oral [Unknown]
  - Hypoaesthesia [Unknown]
  - Insomnia [Unknown]
  - Anxiety [Unknown]
  - Depression [Unknown]
  - Palpitations [Unknown]
  - Pruritus [Unknown]

NARRATIVE: CASE EVENT DATE: 20231106
